FAERS Safety Report 5825708-2 (Version None)
Quarter: 2008Q3

REPORT INFORMATION
  Report Type: 
  Country: None (occurrence: None)
  Receive Date: 20080729
  Receipt Date: 20080718
  Transmission Date: 20090109
  Serious: Yes (Hospitalization)
  Sender: FDA-Public Use
  Company Number: US-BAYER-200828385NA

PATIENT
  Age: 51 Year
  Sex: Male
  Weight: 49 kg

DRUGS (5)
  1. SORAFENIB/PLACEBO [Suspect]
     Indication: NON-SMALL CELL LUNG CANCER
     Dosage: TOTAL DAILY DOSE: 800 MG  UNIT DOSE: 200 MG
     Route: 048
     Dates: start: 20080627, end: 20080711
  2. ERLOTINIB [Suspect]
     Indication: NON-SMALL CELL LUNG CANCER
     Dosage: TOTAL DAILY DOSE: 150 MG
     Route: 048
     Dates: start: 20080627, end: 20080711
  3. PERPHENAZINE [Concomitant]
     Dosage: TOTAL DAILY DOSE: 32 MG
     Route: 048
     Dates: start: 19970101, end: 20080711
  4. OXCARBAZEPINE [Concomitant]
     Dosage: TOTAL DAILY DOSE: 300 MG
     Route: 048
     Dates: start: 19970101, end: 20080711
  5. MECLIZINE [Concomitant]
     Dosage: TOTAL DAILY DOSE: 75 MG
     Route: 048
     Dates: start: 20071001, end: 20080711

REACTIONS (4)
  - ANOREXIA [None]
  - ASTHENIA [None]
  - DEHYDRATION [None]
  - MALNUTRITION [None]
